FAERS Safety Report 9921166 (Version 1)
Quarter: 2014Q1

REPORT INFORMATION
  Report Type: Spontaneous
  Country: US (occurrence: None)
  Receive Date: 20140221
  Receipt Date: 20140221
  Transmission Date: 20141002
  Serious: Yes (Death)
  Sender: FDA-Public Use
  Company Number: None

PATIENT
  Age: 53 Year
  Sex: Male
  Weight: 95.2 kg

DRUGS (2)
  1. ZANAMIVIR [Suspect]
     Route: 042
  2. TAMIFLU [Concomitant]

REACTIONS (7)
  - Respiratory failure [None]
  - Renal failure [None]
  - Malaise [None]
  - Unresponsive to stimuli [None]
  - Hepatic failure [None]
  - Metabolic acidosis [None]
  - Laboratory test abnormal [None]
